FAERS Safety Report 16132751 (Version 1)
Quarter: 2019Q1

REPORT INFORMATION
  Report Type: Spontaneous
  Country: FR (occurrence: FR)
  Receive Date: 20190329
  Receipt Date: 20190329
  Transmission Date: 20190418
  Serious: Yes (Hospitalization)
  Sender: FDA-Public Use
  Company Number: FR-SUN PHARMACEUTICAL INDUSTRIES LTD-2019RR-203211

PATIENT
  Age: 73 Year
  Sex: Male
  Weight: 81.5 kg

DRUGS (4)
  1. TRAMADOL. [Suspect]
     Active Substance: TRAMADOL
     Indication: PAIN
     Dosage: 200 MILLIGRAM, DAILY
     Route: 048
  2. HUILE ESSENTIELLE DE THYM [Interacting]
     Active Substance: THYME
     Indication: GENERAL PHYSICAL HEALTH DETERIORATION
     Dosage: NON PRECISEE
     Route: 048
     Dates: start: 20190206, end: 20190206
  3. HUILE ESSENTIELLE D^EUCALYPTUS [Interacting]
     Active Substance: EUCALYPTUS GLOBULUS POLLEN\EUCALYPTUS GUM
     Indication: GENERAL PHYSICAL HEALTH DETERIORATION
     Dosage: NON PRECISEE
     Route: 048
     Dates: start: 20190206, end: 20190206
  4. HUILE ESSENTIELLE DE MENTHE POIVREE [Interacting]
     Active Substance: HERBALS
     Indication: GENERAL PHYSICAL HEALTH DETERIORATION
     Dosage: NON PRECISEE
     Route: 048
     Dates: start: 20190206, end: 20190206

REACTIONS (4)
  - Urinary incontinence [Recovered/Resolved]
  - Confusional state [Recovered/Resolved]
  - Retrograde amnesia [Recovered/Resolved]
  - Depressed level of consciousness [Recovered/Resolved]

NARRATIVE: CASE EVENT DATE: 20190206
